FAERS Safety Report 7643360-0 (Version None)
Quarter: 2011Q3

REPORT INFORMATION
  Report Type: 
  Country: None (occurrence: None)
  Receive Date: 20110729
  Receipt Date: 20110718
  Transmission Date: 20111222
  Serious: Yes (Other)
  Sender: FDA-Public Use
  Company Number: BR-BRISTOL-MYERS SQUIBB COMPANY-15910490

PATIENT
  Age: 49 Year
  Sex: Female
  Weight: 80 kg

DRUGS (2)
  1. ASPIRIN [Suspect]
     Indication: COAGULOPATHY
  2. HYDREA [Suspect]
     Indication: THROMBOCYTOSIS
     Dosage: 3YRS AGO:DOSAGE1 CAP 500MG/DY ABT 1YR AGO DOSE INCREASED:2 CAP500MG/DY 2YRS AGO 2009 INCSD:3 CAPS
     Route: 048

REACTIONS (6)
  - ABDOMINAL PAIN UPPER [None]
  - PRODUCT CONTAINER ISSUE [None]
  - DRUG INEFFECTIVE [None]
  - PRODUCT COUNTERFEIT [None]
  - DRY MOUTH [None]
  - PLATELET COUNT INCREASED [None]
